FAERS Safety Report 23362900 (Version 1)
Quarter: 2024Q1

REPORT INFORMATION
  Report Type: Spontaneous
  Country: CN (occurrence: CN)
  Receive Date: 20240103
  Receipt Date: 20240103
  Transmission Date: 20240409
  Serious: Yes (Life-Threatening, Hospitalization)
  Sender: FDA-Public Use
  Company Number: CN-Eisai-EC-2024-156107

PATIENT
  Age: 73 Year
  Sex: Female
  Weight: 49 kg

DRUGS (1)
  1. LENVIMA [Suspect]
     Active Substance: LENVATINIB
     Indication: Follicular thyroid cancer
     Route: 048
     Dates: start: 20201116, end: 20231122

REACTIONS (4)
  - Vasculitis [Unknown]
  - Acute myocardial infarction [Unknown]
  - Oedema peripheral [Recovering/Resolving]
  - Cardiac failure [Unknown]

NARRATIVE: CASE EVENT DATE: 20231121
